FAERS Safety Report 13740976 (Version 1)
Quarter: 2017Q3

REPORT INFORMATION
  Report Type: Spontaneous
  Country: US (occurrence: US)
  Receive Date: 20170710
  Receipt Date: 20170710
  Transmission Date: 20171127
  Serious: Yes (Disabling)
  Sender: FDA-Public Use
  Company Number: None

PATIENT
  Age: 35 Year
  Sex: Female
  Weight: 65.7 kg

DRUGS (2)
  1. SUBOXONE [Suspect]
     Active Substance: BUPRENORPHINE HYDROCHLORIDE\NALOXONE HYDROCHLORIDE
     Indication: DRUG DEPENDENCE
     Dosage: ?          OTHER STRENGTH:MG/MG;QUANTITY:1 1;?
     Route: 060
     Dates: start: 20170705, end: 20170710
  2. IBUPROFEN. [Concomitant]
     Active Substance: IBUPROFEN

REACTIONS (4)
  - Pregnancy [None]
  - Tongue discomfort [None]
  - Exposure during pregnancy [None]
  - Withdrawal syndrome [None]

NARRATIVE: CASE EVENT DATE: 20170705
